FAERS Safety Report 25265039 (Version 1)
Quarter: 2025Q2

REPORT INFORMATION
  Report Type: Spontaneous
  Country: US (occurrence: US)
  Receive Date: 20250502
  Receipt Date: 20250502
  Transmission Date: 20250716
  Serious: Yes (Other)
  Sender: SAMSUNG BIOEPIS
  Company Number: US-SAMSUNG BIOEPIS-SB-2025-15003

PATIENT
  Age: 57 Year
  Sex: Female
  Weight: 47.63 kg

DRUGS (3)
  1. HADLIMA [Suspect]
     Active Substance: ADALIMUMAB-BWWD
     Indication: Psoriatic arthropathy
     Dates: start: 20250418
  2. HADLIMA [Suspect]
     Active Substance: ADALIMUMAB-BWWD
     Indication: Hidradenitis
  3. HADLIMA [Suspect]
     Active Substance: ADALIMUMAB-BWWD
     Indication: Ankylosing spondylitis

REACTIONS (17)
  - Psoriatic arthropathy [Unknown]
  - Pruritus [Unknown]
  - Joint swelling [Unknown]
  - Paraesthesia [Unknown]
  - Muscular weakness [Unknown]
  - Rhinorrhoea [Unknown]
  - Pain in extremity [Unknown]
  - Pain in jaw [Unknown]
  - Joint noise [Unknown]
  - Chest pain [Unknown]
  - Fibromyalgia [Unknown]
  - Loss of personal independence in daily activities [Unknown]
  - Musculoskeletal stiffness [Unknown]
  - Drug ineffective [Unknown]
  - Weight decreased [Unknown]
  - Product substitution issue [Unknown]
  - Off label use [Unknown]

NARRATIVE: CASE EVENT DATE: 20250418
